FAERS Safety Report 5897065-7 (Version None)
Quarter: 2008Q3

REPORT INFORMATION
  Report Type: 
  Country: None (occurrence: None)
  Receive Date: 20080923
  Receipt Date: 20080909
  Transmission Date: 20090109
  Serious: Yes (Hospitalization, Other)
  Sender: FDA-Public Use
  Company Number: 08-467

PATIENT
  Age: 22 Year
  Sex: Male

DRUGS (1)
  1. ALEVE [Suspect]
     Indication: INTENTIONAL OVERDOSE
     Dosage: ONCE, ORAL
     Route: 048
     Dates: start: 20080902

REACTIONS (4)
  - CHEST PAIN [None]
  - INTENTIONAL SELF-INJURY [None]
  - REFUSAL OF TREATMENT BY PATIENT [None]
  - SOMNOLENCE [None]
